FAERS Safety Report 7984526-X (Version None)
Quarter: 2011Q4

REPORT INFORMATION
  Report Type: 
  Country: None (occurrence: None)
  Receive Date: 20111216
  Receipt Date: 20111205
  Transmission Date: 20120403
  Serious: Yes (Other)
  Sender: FDA-Public Use
  Company Number: US-JNJFOC-20111202013

PATIENT
  Sex: Female

DRUGS (4)
  1. REMICADE [Suspect]
     Indication: PRODUCT USED FOR UNKNOWN INDICATION
     Route: 042
  2. ORENCIA [Suspect]
     Indication: RHEUMATOID ARTHRITIS
     Route: 042
     Dates: start: 20111028
  3. ORENCIA [Suspect]
     Dosage: 57 INFUSIONS
     Route: 042
     Dates: start: 20061112, end: 20110217
  4. ORENCIA [Suspect]
     Route: 042

REACTIONS (6)
  - DENTAL CARIES [None]
  - UTERINE CARCINOMA IN SITU [None]
  - ERYTHEMA [None]
  - DRUG HYPERSENSITIVITY [None]
  - BIOPSY SITE UNSPECIFIED ABNORMAL [None]
  - PRURITUS [None]
